FAERS Safety Report 16665213 (Version 1)
Quarter: 2019Q3

REPORT INFORMATION
  Report Type: Spontaneous
  Country: US (occurrence: US)
  Receive Date: 20190803
  Receipt Date: 20190803
  Transmission Date: 20191004
  Serious: Yes (Hospitalization, Other)
  Sender: FDA-Public Use
  Company Number: US-AUROBINDO-AUR-APL-2019-043118

PATIENT

DRUGS (2)
  1. ARIPIPRAZOLE. [Suspect]
     Active Substance: ARIPIPRAZOLE
     Dosage: 15 MILLIGRAM/KILOGRAM AT 3:45PM
  2. ARIPIPRAZOLE. [Suspect]
     Active Substance: ARIPIPRAZOLE
     Indication: PRODUCT USED FOR UNKNOWN INDICATION
     Dosage: 200 MILLIGRAM
     Route: 065

REACTIONS (12)
  - Slow speech [Unknown]
  - Bradycardia [Unknown]
  - Accidental overdose [Unknown]
  - Muscle contractions involuntary [Unknown]
  - Trismus [Unknown]
  - Toxicity to various agents [Unknown]
  - Blood pressure systolic decreased [Unknown]
  - Hypokalaemia [Unknown]
  - Ataxia [Recovered/Resolved]
  - Lethargy [Recovered/Resolved]
  - Muscle twitching [Unknown]
  - Somnolence [Recovered/Resolved]
